FAERS Safety Report 24628767 (Version 2)
Quarter: 2025Q1

REPORT INFORMATION
  Report Type: Report from Study
  Country: US (occurrence: US)
  Receive Date: 20241117
  Receipt Date: 20250110
  Transmission Date: 20250408
  Serious: No
  Sender: GLAXOSMITHKLINE
  Company Number: US-GSK-US2024AMR141480

PATIENT

DRUGS (3)
  1. NIRAPARIB [Suspect]
     Active Substance: NIRAPARIB
     Indication: Nausea
  2. NIRAPARIB [Suspect]
     Active Substance: NIRAPARIB
     Indication: Vomiting
  3. NIRAPARIB [Suspect]
     Active Substance: NIRAPARIB
     Indication: Agranulocytosis

REACTIONS (1)
  - Off label use [Unknown]
